FAERS Safety Report 17758255 (Version 2)
Quarter: 2020Q2

REPORT INFORMATION
  Report Type: Spontaneous
  Country: JP (occurrence: JP)
  Receive Date: 20200507
  Receipt Date: 20200603
  Transmission Date: 20200714
  Serious: Yes (Hospitalization)
  Sender: FDA-Public Use
  Company Number: JP-JNJFOC-20200438424

PATIENT
  Age: 9 Decade
  Sex: Male

DRUGS (4)
  1. ZYTIGA [Suspect]
     Active Substance: ABIRATERONE ACETATE
     Indication: PROSTATE CANCER
     Dosage: UNKNOWN
     Route: 048
  2. PREDONINE [Concomitant]
     Active Substance: PREDNISOLONE
     Route: 048
  3. PREDNISOLONE SODIUM SUCCINATE [Concomitant]
     Active Substance: PREDNISOLONE SODIUM SUCCINATE
     Indication: PROSTATE CANCER
     Route: 065
  4. PREDONINE [Concomitant]
     Active Substance: PREDNISOLONE
     Indication: PROSTATE CANCER
     Dosage: UNKNOWN
     Route: 048

REACTIONS (1)
  - Cholecystitis [Recovered/Resolved]
